FAERS Safety Report 20947343 (Version 2)
Quarter: 2023Q4

REPORT INFORMATION
  Report Type: Report from Study
  Country: US (occurrence: US)
  Receive Date: 20220610
  Receipt Date: 20231024
  Transmission Date: 20240110
  Serious: No
  Sender: FDA-Public Use
  Company Number: US-IDORSIA-000514-2022-US

PATIENT
  Sex: Female

DRUGS (1)
  1. QUVIVIQ [Suspect]
     Active Substance: DARIDOREXANT
     Indication: Product used for unknown indication
     Dosage: 50 MG
     Route: 065

REACTIONS (4)
  - Nightmare [Unknown]
  - Sleep paralysis [Unknown]
  - Hallucination [Unknown]
  - Drug ineffective [Unknown]
